FAERS Safety Report 8258789-X (Version None)
Quarter: 2012Q2

REPORT INFORMATION
  Report Type: 
  Country: None (occurrence: None)
  Receive Date: 20120404
  Receipt Date: 20120329
  Transmission Date: 20120825
  Serious: Yes (Other)
  Sender: FDA-Public Use
  Company Number: US-PFIZER INC-2012081059

PATIENT
  Sex: Female
  Weight: 118 kg

DRUGS (8)
  1. ZANAFLEX [Concomitant]
     Indication: MUSCLE RELAXANT THERAPY
     Dosage: 8 MG, 3X/DAY
  2. TRAMADOL [Concomitant]
     Dosage: UNK
  3. LYRICA [Suspect]
     Indication: FIBROMYALGIA
     Dosage: 150 MG, 3X/DAY
     Route: 048
     Dates: start: 20081201, end: 20111216
  4. LASIX [Concomitant]
     Dosage: UNK
  5. AMARYL [Concomitant]
     Dosage: UNK
  6. LYRICA [Suspect]
     Indication: NEUROPATHY PERIPHERAL
     Dosage: 150 MG, 3X/DAY
     Route: 048
     Dates: start: 20111223
  7. OXYCODONE [Concomitant]
     Dosage: UNK
  8. POTASSIUM [Concomitant]
     Dosage: UNK

REACTIONS (11)
  - SKIN DISCOLOURATION [None]
  - HYPERTENSION [None]
  - SKIN LESION [None]
  - RASH [None]
  - ARTHRITIS [None]
  - MUSCULOSKELETAL DISCOMFORT [None]
  - PRURITUS [None]
  - VISION BLURRED [None]
  - BODY HEIGHT DECREASED [None]
  - WEIGHT INCREASED [None]
  - RASH ERYTHEMATOUS [None]
